FAERS Safety Report 18630482 (Version 1)
Quarter: 2020Q4

REPORT INFORMATION
  Report Type: Spontaneous
  Country: GR (occurrence: GR)
  Receive Date: 20201218
  Receipt Date: 20201218
  Transmission Date: 20210114
  Serious: Yes (Other)
  Sender: FDA-Public Use
  Company Number: GR-EMD SERONO-9205967

PATIENT
  Age: 23 Year
  Sex: Female
  Weight: 94 kg

DRUGS (5)
  1. GLUCOPHAGE [Suspect]
     Active Substance: METFORMIN HYDROCHLORIDE
     Indication: WEIGHT DECREASED
     Route: 048
     Dates: start: 20201105, end: 20201107
  2. GLUCOPHAGE [Suspect]
     Active Substance: METFORMIN HYDROCHLORIDE
     Route: 048
     Dates: start: 20201110, end: 20201113
  3. GLUCOPHAGE [Suspect]
     Active Substance: METFORMIN HYDROCHLORIDE
     Route: 048
     Dates: start: 20201108, end: 20201110
  4. VITAMIN D                          /00107901/ [Concomitant]
     Active Substance: ERGOCALCIFEROL
     Indication: PRODUCT USED FOR UNKNOWN INDICATION
  5. GLUCOPHAGE [Suspect]
     Active Substance: METFORMIN HYDROCHLORIDE
     Route: 048
     Dates: start: 20201114, end: 20201201

REACTIONS (7)
  - Nausea [Recovering/Resolving]
  - Off label use [Recovered/Resolved]
  - Ocular icterus [Recovered/Resolved]
  - Vomiting [Recovering/Resolving]
  - Fatigue [Recovered/Resolved]
  - Yellow skin [Recovered/Resolved]
  - Hunger [Recovering/Resolving]

NARRATIVE: CASE EVENT DATE: 202011
